FAERS Safety Report 19122693 (Version 1)
Quarter: 2021Q2

REPORT INFORMATION
  Report Type: Report from Study
  Country: CA (occurrence: CA)
  Receive Date: 20210412
  Receipt Date: 20210412
  Transmission Date: 20210717
  Serious: Yes (Other)
  Sender: FDA-Public Use
  Company Number: CA-BAYER-2021-116050

PATIENT
  Age: 62 Year
  Sex: Female

DRUGS (7)
  1. BETASERON [Suspect]
     Active Substance: INTERFERON BETA-1B
     Indication: MULTIPLE SCLEROSIS
     Dosage: 8 MIU
     Dates: start: 19980701, end: 20210329
  2. GABAPENTIN. [Concomitant]
     Active Substance: GABAPENTIN
  3. CLOPIDOGREL [Concomitant]
     Active Substance: CLOPIDOGREL BISULFATE
     Dosage: 75 MG
  4. RAMIPRIL. [Concomitant]
     Active Substance: RAMIPRIL
     Dosage: 2.5 MG, QD
  5. ACETYLSALICYLIC ACID [Suspect]
     Active Substance: ASPIRIN
  6. ROSUVASTATIN. [Concomitant]
     Active Substance: ROSUVASTATIN
     Dosage: 20 MG
  7. OXYBUTYNIN. [Concomitant]
     Active Substance: OXYBUTYNIN CHLORIDE

REACTIONS (5)
  - Colitis microscopic [Not Recovered/Not Resolved]
  - Bone marrow disorder [None]
  - Gastrointestinal disorder [None]
  - Drug interaction [None]
  - Atrioventricular block [None]

NARRATIVE: CASE EVENT DATE: 2019
